FAERS Safety Report 4852041-8 (Version None)
Quarter: 2005Q4

REPORT INFORMATION
  Report Type: 
  Country: None (occurrence: None)
  Receive Date: 20051123
  Receipt Date: 20050915
  Transmission Date: 20060501
  Serious: Yes (Hospitalization)
  Sender: FDA-Public Use
  Company Number: 217802

PATIENT
  Age: 35 Year
  Sex: Male
  Weight: 120.2 kg

DRUGS (1)
  1. RAPTIVA [Suspect]
     Dosage: 1.2 ML, 1/WEEK, SUBCUTANEOUS
     Route: 058
     Dates: start: 20050429, end: 20050906

REACTIONS (1)
  - PSORIATIC ARTHROPATHY [None]
